FAERS Safety Report 8247293-0 (Version None)
Quarter: 2012Q1

REPORT INFORMATION
  Report Type: 
  Country: None (occurrence: None)
  Receive Date: 20120330
  Receipt Date: 20120321
  Transmission Date: 20120608
  Serious: Yes (Hospitalization)
  Sender: FDA-Public Use
  Company Number: US-SHIRE-ALL1-2012-01565

PATIENT
  Sex: Female
  Weight: 107.3 kg

DRUGS (28)
  1. MAGNESIUM CHLORIDE [Concomitant]
     Indication: SUPPLEMENTATION THERAPY
     Dosage: 64 MG, 1X/DAY:QD
     Route: 048
     Dates: start: 19940101
  2. LEVOXYL [Concomitant]
     Dosage: 100 ?G, 1X/DAY:QD
     Route: 048
     Dates: start: 20120109
  3. XANAX [Concomitant]
     Dosage: 1 MG, 1X/DAY:QD
     Route: 048
     Dates: start: 20120109
  4. CYMBALTA [Concomitant]
     Indication: DEPRESSION
     Dosage: 120 MG (TWO 60 MG CAPSULES), 1X/DAY:QD
     Route: 048
     Dates: end: 20111101
  5. LOVASTATIN [Concomitant]
     Dosage: 40 MG, 1X/DAY:QD
     Route: 048
     Dates: start: 20120109
  6. PREMPRO [Concomitant]
     Indication: HOT FLUSH
     Dosage: UNK (0.625/2.5 MG), UNKNOWN
     Route: 048
     Dates: start: 19870101
  7. PREMPRO [Concomitant]
     Dosage: UNK (0.625/2.5 MG), UNKNOWN
     Route: 048
     Dates: start: 20120109
  8. KLOR-CON [Concomitant]
     Dosage: 20 MEQ (TWO 10 MEQ), 2X/DAY:BID
     Route: 048
     Dates: start: 20120109
  9. LOVASTATIN [Concomitant]
     Indication: BLOOD CHOLESTEROL
     Dosage: 40 MG, 1X/DAY:QD
     Route: 048
     Dates: start: 20070101
  10. IBUPROFEN [Concomitant]
     Dosage: 800 MG, 2X/DAY:BID
     Route: 048
     Dates: start: 20120109
  11. TRIAZOLAM [Concomitant]
     Indication: INSOMNIA
     Dosage: 0.25 MG, 1X/DAY:QD
     Route: 048
     Dates: start: 20110101
  12. DIOVAN [Concomitant]
     Dosage: 320 MG, 1X/DAY:QD
     Route: 048
     Dates: start: 20120109
  13. XANAX [Concomitant]
     Indication: INSOMNIA
     Dosage: 1 MG, 1X/DAY:QD
     Route: 048
     Dates: start: 20110101
  14. DIOVAN [Concomitant]
     Indication: HYPERTENSION
     Dosage: 320 MG, 1X/DAY:QD
     Route: 048
     Dates: end: 20120107
  15. AMLODIPINE [Concomitant]
     Dosage: 5 MG, 1X/DAY:QD
     Route: 048
     Dates: start: 20120109
  16. SPIRONOLACTONE [Concomitant]
     Indication: HYPERTENSION
     Dosage: 25 MG, 1X/DAY:QD
     Route: 048
  17. ADDERALL XR 10 [Suspect]
     Indication: ASTHENIA
     Dosage: 30 MG, 1X/DAY:QD IN AM
     Route: 048
     Dates: start: 20010101, end: 20120107
  18. ADDERALL XR 10 [Suspect]
     Indication: DEPRESSION
     Dosage: 30 MG, 1X/DAY:QD IN AM
     Route: 048
     Dates: start: 20120109, end: 20120101
  19. ADDERALL XR 10 [Suspect]
     Dosage: 20 MG, 1X/DAY:QD IN PM
     Route: 048
     Dates: end: 20120107
  20. SPIRONOLACTONE [Concomitant]
     Dosage: 25 MG, 1X/DAY:QD
     Route: 048
     Dates: start: 20120109
  21. KLOR-CON [Concomitant]
     Indication: MINERAL SUPPLEMENTATION
     Dosage: 20 MEQ (TWO 10 MEQ), 2X/DAY:BID
     Route: 048
     Dates: start: 19940101
  22. TRIAZOLAM [Concomitant]
     Dosage: 0.25 MG, 1X/DAY:QD
     Route: 048
     Dates: start: 20120109
  23. AMLODIPINE [Concomitant]
     Indication: HYPERTENSION
     Dosage: 5 MG, 1X/DAY:QD
     Route: 048
     Dates: end: 20120107
  24. MAGNESIUM CHLORIDE [Concomitant]
     Dosage: 64 MG, 1X/DAY:QD
     Route: 048
     Dates: start: 20120109
  25. BONIVA [Concomitant]
     Indication: PROPHYLAXIS
     Dosage: 150 MG, OTHER (MONTHLY)
     Route: 048
     Dates: start: 20080101
  26. BONIVA [Concomitant]
     Dosage: 150 MG, OTHER (MONTHLY)
     Route: 048
     Dates: start: 20120109
  27. IBUPROFEN [Concomitant]
     Indication: ARTHRALGIA
     Dosage: 800 MG, 2X/DAY:BID
     Route: 048
     Dates: start: 19940101
  28. LEVOXYL [Concomitant]
     Indication: HYPOTHYROIDISM
     Dosage: 100 ?G, 1X/DAY:QD
     Route: 048
     Dates: start: 19850101

REACTIONS (10)
  - BLOOD GLUCOSE ABNORMAL [None]
  - GLUCOSE TOLERANCE IMPAIRED [None]
  - DECREASED APPETITE [None]
  - SOMNOLENCE [None]
  - OVERDOSE [None]
  - DEPRESSION [None]
  - DRUG EFFECT DECREASED [None]
  - MUSCLE ATROPHY [None]
  - DRUG PRESCRIBING ERROR [None]
  - OFF LABEL USE [None]
